FAERS Safety Report 15092738 (Version 1)
Quarter: 2018Q2

REPORT INFORMATION
  Report Type: Report from Study
  Country: DE (occurrence: DE)
  Receive Date: 20180629
  Receipt Date: 20180629
  Transmission Date: 20180711
  Serious: Yes (Congenital Anomaly, Other)
  Sender: FDA-Public Use
  Company Number: DE-MYLANLABS-2018M1046231

PATIENT
  Sex: Male

DRUGS (2)
  1. ENALAPRIL [Suspect]
     Active Substance: ENALAPRIL
     Indication: HYPERTENSION
     Dosage: EXPOSURE 0-8 GESTATIONAL WEEKS
     Route: 064
  2. METOPROLOL. [Concomitant]
     Active Substance: METOPROLOL
     Indication: PRODUCT USED FOR UNKNOWN INDICATION
     Dosage: EXPOSURE DURATION 7+6 WEEKS TO 37+6 GESTATION WEEKS
     Route: 064

REACTIONS (3)
  - Renal dysplasia [Unknown]
  - Foetal exposure during pregnancy [Recovered/Resolved]
  - Abnormal palmar/plantar creases [Unknown]
